FAERS Safety Report 7479695-4 (Version None)
Quarter: 2011Q2

REPORT INFORMATION
  Report Type: 
  Country: None (occurrence: None)
  Receive Date: 20110513
  Receipt Date: 20110510
  Transmission Date: 20111010
  Serious: Yes (Death)
  Sender: FDA-Public Use
  Company Number: US-ABBOTT-11P-163-0724186-00

PATIENT
  Sex: Female
  Weight: 45.4 kg

DRUGS (6)
  1. HUMIRA [Suspect]
     Indication: RHEUMATOID ARTHRITIS
     Route: 058
     Dates: start: 20050101
  2. PREMARIN [Concomitant]
     Indication: PRODUCT USED FOR UNKNOWN INDICATION
  3. PREDNISOLONE [Concomitant]
     Indication: RHEUMATOID ARTHRITIS
  4. HEPARIN [Concomitant]
     Indication: THROMBOSIS
     Route: 058
  5. ENALAPRIL [Concomitant]
     Indication: HYPERTENSION
  6. CARDIZEM [Concomitant]
     Indication: HYPERTENSION

REACTIONS (6)
  - LIMB INJURY [None]
  - DYSPNOEA [None]
  - RESPIRATORY DISTRESS [None]
  - SYNCOPE [None]
  - CARDIOPULMONARY FAILURE [None]
  - PULMONARY EMBOLISM [None]
